FAERS Safety Report 5729118-8 (Version None)
Quarter: 2008Q2

REPORT INFORMATION
  Report Type: 
  Country: None (occurrence: None)
  Receive Date: 20080506
  Receipt Date: 20080428
  Transmission Date: 20081010
  Serious: Yes (Other)
  Sender: FDA-Public Use
  Company Number: US-PFIZER INC-2008037487

PATIENT
  Sex: Female
  Weight: 88.181 kg

DRUGS (6)
  1. DETROL LA [Suspect]
     Indication: POLLAKIURIA
  2. PREMARIN [Concomitant]
  3. LOVASTATIN [Concomitant]
  4. OMEPRAZOLE [Concomitant]
  5. NIACIN [Concomitant]
  6. ACETYLSALICYLIC ACID SRT [Concomitant]

REACTIONS (3)
  - BLADDER DISORDER [None]
  - BLOOD URINE PRESENT [None]
  - URINARY TRACT INFECTION [None]
